FAERS Safety Report 23035922 (Version 1)
Quarter: 2023Q4

REPORT INFORMATION
  Report Type: Spontaneous
  Country: PT (occurrence: PT)
  Receive Date: 20231006
  Receipt Date: 20231006
  Transmission Date: 20240109
  Serious: Yes (Hospitalization, Other)
  Sender: FDA-Public Use
  Company Number: None

PATIENT
  Age: 59 Year
  Sex: Male
  Weight: 199 kg

DRUGS (2)
  1. OPDIVO [Suspect]
     Active Substance: NIVOLUMAB
     Indication: Malignant melanoma
     Route: 042
     Dates: start: 20230811
  2. YERVOY [Suspect]
     Active Substance: IPILIMUMAB
     Indication: Malignant melanoma
     Route: 042
     Dates: start: 20230811

REACTIONS (5)
  - Hepatitis [Not Recovered/Not Resolved]
  - Thyroiditis [Not Recovered/Not Resolved]
  - Dermatitis [Not Recovered/Not Resolved]
  - Atrial fibrillation [Not Recovered/Not Resolved]
  - Pneumonitis [Not Recovered/Not Resolved]

NARRATIVE: CASE EVENT DATE: 20230901
